FAERS Safety Report 6678900-1 (Version None)
Quarter: 2010Q2

REPORT INFORMATION
  Report Type: 
  Country: None (occurrence: None)
  Receive Date: 20100402
  Receipt Date: 20011017
  Transmission Date: 20101027
  Serious: Yes (Hospitalization)
  Sender: FDA-Public Use
  Company Number: 23100075

PATIENT
  Age: 78 Year
  Sex: Male

DRUGS (1)
  1. ARGATROBAN [Suspect]
     Indication: HEPARIN-INDUCED THROMBOCYTOPENIA
     Dosage: 10.4 ML, INTRAVENOUS
     Route: 042
     Dates: start: 20011015

REACTIONS (1)
  - INTERNATIONAL NORMALISED RATIO INCREASED [None]
